FAERS Safety Report 8720584 (Version 2)
Quarter: 2013Q1

REPORT INFORMATION
  Report Type: Report from Study
  Country: JP (occurrence: JP)
  Receive Date: 20120813
  Receipt Date: 20130305
  Transmission Date: 20140127
  Serious: Yes (Hospitalization)
  Sender: FDA-Public Use
  Company Number: JP-ACTELION-A-CH2010-42038

PATIENT
  Age: 76 Year
  Sex: Female
  Weight: 40 kg

DRUGS (8)
  1. TRACLEER [Suspect]
     Indication: PULMONARY ARTERIAL HYPERTENSION
     Dosage: 62.5 MG, BID
     Route: 048
     Dates: start: 20100326, end: 20100603
  2. TRACLEER [Suspect]
     Dosage: 62.5 MG, QD
     Route: 048
     Dates: start: 20100312, end: 20100325
  3. TRACLEER [Suspect]
     Dosage: 93.75 MG, BID
     Route: 048
     Dates: start: 20100604, end: 20100701
  4. TRACLEER [Suspect]
     Dosage: 125 MG, BID
     Route: 048
     Dates: start: 20100702
  5. FUROSEMIDE [Concomitant]
  6. PREDNISOLONE [Concomitant]
  7. ALENDRONATE SODIUM [Concomitant]
  8. OXYGEN [Concomitant]

REACTIONS (4)
  - Pulmonary arterial hypertension [Recovering/Resolving]
  - Condition aggravated [Recovering/Resolving]
  - Skin ulcer [Recovering/Resolving]
  - Pyrexia [Recovered/Resolved]
